FAERS Safety Report 20458560 (Version 13)
Quarter: 2023Q2

REPORT INFORMATION
  Report Type: Spontaneous
  Country: GB (occurrence: GB)
  Receive Date: 20220211
  Receipt Date: 20230515
  Transmission Date: 20230722
  Serious: Yes (Other)
  Sender: FDA-Public Use
  Company Number: GB-AUROBINDO-AUR-APL-2012-03774

PATIENT
  Age: 15 Year
  Sex: Female

DRUGS (15)
  1. ARIPIPRAZOLE [Interacting]
     Active Substance: ARIPIPRAZOLE
     Indication: Bipolar disorder
     Dosage: UNK (TABLET (UNCOATED, ORAL)
     Route: 048
  2. CETIRIZINE HYDROCHLORIDE [Interacting]
     Active Substance: CETIRIZINE HYDROCHLORIDE
     Indication: Seasonal allergy
     Dosage: 1 MILLIGRAM, ONCE A DAY(,ONCE A DAY (OCCASIONAL CETIRIZINE)
     Route: 048
  3. CETIRIZINE HYDROCHLORIDE [Interacting]
     Active Substance: CETIRIZINE HYDROCHLORIDE
     Dosage: 1 MILLIGRAM, FOUR TIMES/DAY
     Route: 048
  4. LAMOTRIGINE [Suspect]
     Active Substance: LAMOTRIGINE
     Indication: Bipolar disorder
     Dosage: 50 MILLIGRAM, 3 TIMES A DAY
     Route: 048
  5. ABILIFY [Suspect]
     Active Substance: ARIPIPRAZOLE
     Indication: Bipolar disorder
     Dosage: UNK (TABLET (UNCOATED, ORAL)
     Route: 048
  6. ABILIFY [Suspect]
     Active Substance: ARIPIPRAZOLE
     Dosage: UNK
     Route: 065
  7. ETONOGESTREL [Suspect]
     Active Substance: ETONOGESTREL
     Indication: Contraception
     Dosage: UNK
     Route: 065
  8. LAMICTAL [Suspect]
     Active Substance: LAMOTRIGINE
     Indication: Bipolar disorder
     Dosage: 50 MILLIGRAM, ONCE A DAY
     Route: 048
  9. LAMICTAL [Suspect]
     Active Substance: LAMOTRIGINE
     Dosage: 50 MILLIGRAM, 3 TIMES A DAY
     Route: 048
  10. LAMICTAL [Suspect]
     Active Substance: LAMOTRIGINE
     Dosage: 50 MILLIGRAM, TWO TIMES A DAY
     Route: 048
  11. LAMICTAL [Suspect]
     Active Substance: LAMOTRIGINE
     Dosage: 150 MILLIGRAM, ONCE A DAY/50 MILLIGRAM, 3 TIMES A DAY/ 150 MILLIGRAM DAILY
     Route: 048
  12. LAMICTAL [Suspect]
     Active Substance: LAMOTRIGINE
     Dosage: 50 MILLIGRAM
     Route: 048
  13. LAMICTAL [Suspect]
     Active Substance: LAMOTRIGINE
     Dosage: 50 MILLIGRAM, 3 TIMES A DAY/ 150 MILLIGRAM DAILY
     Route: 050
  14. NEXPLANON [Suspect]
     Active Substance: ETONOGESTREL
     Indication: Contraception
     Dosage: 68 MILLIGRAM
     Route: 059
  15. NEXPLANON [Suspect]
     Active Substance: ETONOGESTREL
     Dosage: 68 MILLIGRAM
     Route: 058

REACTIONS (10)
  - Drug interaction [Unknown]
  - Abortion spontaneous [Unknown]
  - Exposure during pregnancy [Unknown]
  - Intermenstrual bleeding [Unknown]
  - Maternal exposure during pregnancy [Recovered/Resolved]
  - Pregnancy with implant contraceptive [Recovered/Resolved]
  - Pregnancy on contraceptive [Recovered/Resolved]
  - Pregnancy with contraceptive device [Recovered/Resolved]
  - Pregnancy [Recovered/Resolved]
  - Unintended pregnancy [Recovered/Resolved]
